FAERS Safety Report 7691052-4 (Version None)
Quarter: 2011Q3

REPORT INFORMATION
  Report Type: 
  Country: None (occurrence: None)
  Receive Date: 20110818
  Receipt Date: 20110817
  Transmission Date: 20111222
  Serious: Yes (Other)
  Sender: FDA-Public Use
  Company Number: US-PFIZER INC-2011132526

PATIENT
  Sex: Female

DRUGS (1)
  1. CHANTIX [Suspect]
     Indication: SMOKING CESSATION THERAPY
     Dosage: 0.5 MG AND 1 MG
     Dates: start: 20090622, end: 20091001

REACTIONS (5)
  - NIGHTMARE [None]
  - MENTAL DISORDER [None]
  - ANXIETY [None]
  - DEPRESSION [None]
  - SUICIDAL BEHAVIOUR [None]
